FAERS Safety Report 7723534-0 (Version None)
Quarter: 2011Q3

REPORT INFORMATION
  Report Type: 
  Country: None (occurrence: None)
  Receive Date: 20110901
  Receipt Date: 20110827
  Transmission Date: 20111222
  Serious: Yes (Death, Other)
  Sender: FDA-Public Use
  Company Number: PHHY2011MX76687

PATIENT
  Age: 72 Year
  Sex: Female

DRUGS (4)
  1. HYDROCHLOROTHIAZID [Concomitant]
     Dosage: UNK UKN, UNK
     Dates: start: 20110725
  2. EXFORGE [Suspect]
     Indication: HYPERTENSION
     Dosage: VALSARTAN160 MG, AMLODIPINE 10 MG, 2 TABLET DAILY
     Dates: start: 20110725
  3. PENTOXIFYLLINE [Concomitant]
     Dosage: UNK UKN, UNK
     Dates: start: 20110301
  4. LEVOTHYROXINE SODIUM [Concomitant]
     Dosage: UNK UKN, UNK

REACTIONS (7)
  - CARDIO-RESPIRATORY ARREST [None]
  - BLOOD UREA INCREASED [None]
  - RENAL FAILURE [None]
  - PNEUMONIA [None]
  - IMMUNODEFICIENCY [None]
  - CARDIAC FAILURE [None]
  - DIABETES MELLITUS [None]
